FAERS Safety Report 12654744 (Version 1)
Quarter: 2016Q3

REPORT INFORMATION
  Report Type: Spontaneous
  Country: US (occurrence: None)
  Receive Date: 20160815
  Receipt Date: 20160815
  Transmission Date: 20161109
  Serious: No
  Sender: FDA-Public Use
  Company Number: None

PATIENT
  Age: 71 Year
  Sex: Female

DRUGS (1)
  1. TRACLEER [Suspect]
     Active Substance: BOSENTAN
     Indication: PULMONARY ARTERIAL HYPERTENSION
     Route: 048
     Dates: start: 20141117, end: 20160814

REACTIONS (3)
  - Forced vital capacity decreased [None]
  - Carbon monoxide diffusing capacity decreased [None]
  - Forced expiratory volume decreased [None]

NARRATIVE: CASE EVENT DATE: 20160812
